FAERS Safety Report 6969152-3 (Version None)
Quarter: 2010Q3

REPORT INFORMATION
  Report Type: 
  Country: None (occurrence: None)
  Receive Date: 20100907
  Receipt Date: 20100819
  Transmission Date: 20110219
  Serious: Yes (Death)
  Sender: FDA-Public Use
  Company Number: US-NOVOPROD-313232

PATIENT
  Sex: Male

DRUGS (1)
  1. NOVOSEVEN RT [Suspect]
     Indication: FACTOR VII DEFICIENCY
     Dosage: UNKNOWN
     Dates: start: 20100227, end: 20100227

REACTIONS (1)
  - HAEMORRHAGE [None]
